FAERS Safety Report 6063062-4 (Version None)
Quarter: 2009Q1

REPORT INFORMATION
  Report Type: 
  Country: None (occurrence: None)
  Receive Date: 20090203
  Receipt Date: 20090123
  Transmission Date: 20090719
  Serious: Yes (Other)
  Sender: FDA-Public Use
  Company Number: PHHY2009FR02679

PATIENT
  Age: 83 Year
  Sex: Female

DRUGS (2)
  1. ACLASTA [Suspect]
  2. MONOCRIXO [Suspect]
     Indication: MUSCULOSKELETAL PAIN

REACTIONS (2)
  - HYPOGLYCAEMIA [None]
  - MUSCULOSKELETAL PAIN [None]
